FAERS Safety Report 11039626 (Version 2)
Quarter: 2015Q2

REPORT INFORMATION
  Report Type: Spontaneous
  Country: US (occurrence: US)
  Receive Date: 20150416
  Receipt Date: 20150525
  Transmission Date: 20150821
  Serious: No
  Sender: FDA-Public Use
  Company Number: US-JNJFOC-20130306707

PATIENT
  Age: 81 Year
  Sex: Female

DRUGS (13)
  1. TOVIAZ [Concomitant]
     Active Substance: FESOTERODINE FUMARATE
     Indication: URINARY INCONTINENCE
     Dosage: 1/TABLET/1/ONCE A DAY
     Route: 048
  2. XARELTO [Suspect]
     Active Substance: RIVAROXABAN
     Indication: CEREBROVASCULAR ACCIDENT PROPHYLAXIS
     Route: 048
     Dates: start: 20130301
  3. CARBIDOPA. [Concomitant]
     Active Substance: CARBIDOPA
     Indication: PARKINSON^S DISEASE
     Dosage: 25/100MG
     Route: 048
     Dates: start: 20130129
  4. AZILECT [Concomitant]
     Active Substance: RASAGILINE MESYLATE
     Indication: PRODUCT USED FOR UNKNOWN INDICATION
     Dosage: 1/TABLET/1/ONCE A DAY
     Route: 048
  5. DIGOXIN. [Concomitant]
     Active Substance: DIGOXIN
     Indication: CARDIAC DISORDER
     Route: 048
  6. CHONDROITIN [Concomitant]
     Active Substance: CHONDROITIN
     Indication: ARTHROPATHY
     Route: 048
  7. LATANOPROST. [Concomitant]
     Active Substance: LATANOPROST
     Indication: OCULAR DISCOMFORT
     Dosage: 1 DROP/SOLUTION/1 DROP/ONCE A DAY
     Route: 031
     Dates: start: 20130307
  8. VITAMIN [Concomitant]
     Active Substance: VITAMINS
     Indication: NUTRITIONAL SUPPLEMENTATION
     Dosage: 1/TABLET/1/ONCE A DAY
     Route: 048
  9. LOSARTAN [Concomitant]
     Active Substance: LOSARTAN
     Indication: BLOOD CHOLESTEROL
     Dosage: 1/TABLET/1/ONCE A DAY
     Route: 048
  10. LEVODOPA [Concomitant]
     Active Substance: LEVODOPA
     Indication: PARKINSON^S DISEASE
     Route: 048
     Dates: start: 20130129
  11. ATORVASTATIN [Concomitant]
     Active Substance: ATORVASTATIN
     Indication: PRODUCT USED FOR UNKNOWN INDICATION
     Route: 048
  12. GLUCOSAMINE [Concomitant]
     Active Substance: GLUCOSAMINE
     Indication: ARTHROPATHY
     Route: 048
  13. METOPROLOL [Concomitant]
     Active Substance: METOPROLOL
     Indication: BLOOD PRESSURE
     Dosage: 1/TABLET/1/ONCE A DAY
     Route: 048

REACTIONS (1)
  - Nausea [Not Recovered/Not Resolved]

NARRATIVE: CASE EVENT DATE: 20130302
